FAERS Safety Report 8776440 (Version 1)
Quarter: 2012Q4

REPORT INFORMATION
  Report Type: 
  Country: DE (occurrence: DE)
  Receive Date: 20120910
  Receipt Date: 20120910
  Transmission Date: 20130627
  Serious: Yes (Death, Congenital Anomaly)
  Sender: FDA-Public Use
  Company Number: DE-MYLANLABS-2012S1017909

PATIENT
  Sex: Male

DRUGS (2)
  1. SUMATRIPTAN [Suspect]
     Indication: MIGRAINE
     Dosage: on demand
     Route: 064
  2. FOLIO FORTE [Concomitant]
     Indication: PROPHYLAXIS OF NEURAL TUBE DEFECT
     Route: 064

REACTIONS (2)
  - Exposure during pregnancy [Fatal]
  - Renal aplasia [Fatal]
